FAERS Safety Report 15239177 (Version 4)
Quarter: 2019Q1

REPORT INFORMATION
  Report Type: Spontaneous
  Country: HU (occurrence: HU)
  Receive Date: 20180803
  Receipt Date: 20190228
  Transmission Date: 20190417
  Serious: Yes (Hospitalization, Other)
  Sender: FDA-Public Use
  Company Number: HU-MYLANLABS-2018M1057304

PATIENT
  Age: 64 Year
  Sex: Female

DRUGS (8)
  1. TIENAM [Suspect]
     Active Substance: CILASTATIN SODIUM\IMIPENEM
     Indication: NEPHRITIS
     Dosage: 500 MG, QD
     Dates: start: 20130505, end: 201305
  2. FLUCONAZOLE. [Suspect]
     Active Substance: FLUCONAZOLE
     Indication: FUNGAL INFECTION
     Dosage: 400 MG, QD
     Route: 065
     Dates: start: 20130505, end: 201305
  3. VALSARTAN. [Suspect]
     Active Substance: VALSARTAN
     Indication: HYPERTENSION
     Dosage: UNK
     Route: 065
     Dates: end: 201302
  4. NEBIVOLOL. [Suspect]
     Active Substance: NEBIVOLOL
     Indication: HYPERTENSION
     Dosage: UNK
  5. NEBIVOLOL HYDROCHLORIDE [Suspect]
     Active Substance: NEBIVOLOL HYDROCHLORIDE
     Indication: HYPERTENSION
     Dosage: UNK
     Route: 065
  6. FLUCONAZOLE. [Suspect]
     Active Substance: FLUCONAZOLE
     Dosage: 400 MG, UNK
     Dates: start: 20130504, end: 201305
  7. VALSARTAN. [Suspect]
     Active Substance: VALSARTAN
     Dosage: UNK
  8. TIENAM [Suspect]
     Active Substance: CILASTATIN SODIUM\IMIPENEM
     Indication: UROSEPSIS
     Dosage: 1500 MG, QD (TIENAM 500 MG POR OLDATOS INF?ZI?HOZ )
     Route: 065
     Dates: start: 20130505

REACTIONS (1)
  - Hepatitis fulminant [Recovered/Resolved]

NARRATIVE: CASE EVENT DATE: 20130512
